FAERS Safety Report 6274644-9 (Version None)
Quarter: 2009Q3

REPORT INFORMATION
  Report Type: 
  Country: None (occurrence: None)
  Receive Date: 20090717
  Receipt Date: 20090713
  Transmission Date: 20100115
  Serious: Yes (Other)
  Sender: FDA-Public Use
  Company Number: CERZ-1000210

PATIENT
  Age: 63 Year
  Sex: Female
  Weight: 86 kg

DRUGS (2)
  1. CEREZYME [Suspect]
     Indication: GAUCHER'S DISEASE
     Dosage: 3800 U, Q2W; INTRAVENOUS
     Route: 042
     Dates: start: 19961126
  2. UNSPECIFIED THYROID REPLACEMENT MEDICATION [Concomitant]

REACTIONS (10)
  - ABDOMINAL DISTENSION [None]
  - ANEURYSM [None]
  - ANXIETY [None]
  - CHEST PAIN [None]
  - DECREASED APPETITE [None]
  - DYSPNOEA [None]
  - HEARING IMPAIRED [None]
  - HYPERHIDROSIS [None]
  - NEUROPATHY PERIPHERAL [None]
  - WEIGHT INCREASED [None]
